FAERS Safety Report 21085852 (Version 1)
Quarter: 2022Q3

REPORT INFORMATION
  Report Type: Spontaneous
  Country: US (occurrence: US)
  Receive Date: 20220715
  Receipt Date: 20220715
  Transmission Date: 20221026
  Serious: No
  Sender: FDA-Public Use
  Company Number: US-SUN PHARMACEUTICAL INDUSTRIES LTD-2021R1-318146

PATIENT
  Sex: Male

DRUGS (1)
  1. TESTOSTERONE [Suspect]
     Active Substance: TESTOSTERONE
     Indication: Blood testosterone decreased
     Dosage: 0.65 MILLILITER, WEEKLY
     Route: 030

REACTIONS (4)
  - Product dose omission issue [Unknown]
  - Product preparation error [Unknown]
  - Self-medication [Unknown]
  - Underdose [Unknown]
